FAERS Safety Report 5923828-5 (Version None)
Quarter: 2008Q4

REPORT INFORMATION
  Report Type: 
  Country: None (occurrence: None)
  Receive Date: 20081020
  Receipt Date: 20081013
  Transmission Date: 20090506
  Serious: Yes (Other)
  Sender: FDA-Public Use
  Company Number: US-TYCO HEALTHCARE/MALLINCKRODT-T200801654

PATIENT

DRUGS (1)
  1. ACETAMINOPHEN AND HYDROCODONE BITARTRATE [Suspect]
     Dosage: 1 TABLET, EVERY 6 HRS
     Dates: end: 20081001

REACTIONS (4)
  - DIZZINESS [None]
  - DYSPNOEA [None]
  - RESPIRATORY DISORDER [None]
  - THROAT TIGHTNESS [None]
